FAERS Safety Report 15554781 (Version 4)
Quarter: 2019Q1

REPORT INFORMATION
  Report Type: Spontaneous
  Country: CA (occurrence: CA)
  Receive Date: 20181026
  Receipt Date: 20190314
  Transmission Date: 20190417
  Serious: Yes (Hospitalization, Other)
  Sender: FDA-Public Use
  Company Number: CA-CELLTRION INC.-2017CA004423

PATIENT

DRUGS (14)
  1. INFLECTRA [Suspect]
     Active Substance: INFLIXIMAB-DYYB
     Dosage: 270 MG, EVERY 8 WEEKS;
     Route: 042
     Dates: start: 20181220
  2. DIPHENHYDRAMINE. [Concomitant]
     Active Substance: DIPHENHYDRAMINE
     Dosage: 50 MG
     Route: 048
  3. HYDROCORTISONE. [Concomitant]
     Active Substance: HYDROCORTISONE
     Dosage: 100 MG
     Route: 042
  4. INFLECTRA [Suspect]
     Active Substance: INFLIXIMAB-DYYB
     Dosage: UNK EVERY 8 WEEKS
     Route: 042
     Dates: start: 20180821, end: 20181016
  5. INFLECTRA [Suspect]
     Active Substance: INFLIXIMAB-DYYB
     Dosage: 270 MG, EVERY 8 WEEKS;
     Route: 042
     Dates: start: 20181220
  6. ACETAMINOPHEN. [Concomitant]
     Active Substance: ACETAMINOPHEN
     Dosage: 650 MG
     Route: 048
  7. LEFLUNOMIDE. [Concomitant]
     Active Substance: LEFLUNOMIDE
     Indication: RHEUMATOID ARTHRITIS
     Dosage: 20 MG, DAILY
     Route: 048
     Dates: start: 20170320
  8. LOSEC [Concomitant]
     Active Substance: OMEPRAZOLE
     Dosage: UNK
  9. INFLECTRA [Suspect]
     Active Substance: INFLIXIMAB-DYYB
     Indication: RHEUMATOID ARTHRITIS
     Dosage: 300 MG, EVERY 0,2,6 WEEKS THEN EVERY 8 WEEKS FOR 12 MONTHS
     Route: 042
     Dates: start: 20160825, end: 20170524
  10. INFLECTRA [Suspect]
     Active Substance: INFLIXIMAB-DYYB
     Dosage: 272 MG, EVERY 8 WEEKS
     Route: 042
     Dates: start: 2017
  11. PREDNISONE. [Concomitant]
     Active Substance: PREDNISONE
     Dosage: UNK
  12. INFLECTRA [Suspect]
     Active Substance: INFLIXIMAB-DYYB
     Dosage: 270 MG, (3MG/KG) EVERY 0, 2, 6 WEEKS THEN EVERY 8 WEEKS
     Route: 042
     Dates: start: 20170920
  13. INFLECTRA [Suspect]
     Active Substance: INFLIXIMAB-DYYB
     Dosage: 272 MG, EVERY 8 WEEKS
     Route: 042
     Dates: start: 20171115
  14. INFLECTRA [Suspect]
     Active Substance: INFLIXIMAB-DYYB
     Dosage: UNK
     Route: 042
     Dates: start: 20181031

REACTIONS (15)
  - Retinal tear [Unknown]
  - Retinal haemorrhage [Recovered/Resolved]
  - Oropharyngeal pain [Unknown]
  - Inflammation [Not Recovered/Not Resolved]
  - Food poisoning [Unknown]
  - Asthenia [Not Recovered/Not Resolved]
  - Drug effect incomplete [Unknown]
  - Vertigo [Not Recovered/Not Resolved]
  - Diarrhoea [Recovered/Resolved]
  - Blood pressure fluctuation [Unknown]
  - Product use issue [Unknown]
  - Product use issue [Unknown]
  - Nasopharyngitis [Unknown]
  - Dyspepsia [Not Recovered/Not Resolved]
  - Rhinorrhoea [Unknown]

NARRATIVE: CASE EVENT DATE: 201705
